FAERS Safety Report 21568438 (Version 1)
Quarter: 2022Q4

REPORT INFORMATION
  Report Type: Spontaneous
  Country: US (occurrence: None)
  Receive Date: 20221107
  Receipt Date: 20221107
  Transmission Date: 20230112
  Serious: Yes (Life-Threatening, Hospitalization)
  Sender: FDA-Public Use
  Company Number: None

PATIENT
  Age: 56 Year
  Sex: Male
  Weight: 148 kg

DRUGS (3)
  1. LISINOPRIL [Suspect]
     Active Substance: LISINOPRIL
     Indication: Hypertension
     Dosage: FREQUENCY : DAILY;?
     Route: 048
     Dates: start: 20141117, end: 20220716
  2. FLECAINIDE [Suspect]
     Active Substance: FLECAINIDE
     Indication: Cardiac operation
     Dosage: FREQUENCY : TWICE A DAY;?
     Route: 048
     Dates: start: 20220413, end: 20221003
  3. FLECAINIDE [Suspect]
     Active Substance: FLECAINIDE
     Indication: Arrhythmia

REACTIONS (1)
  - Angioedema [None]

NARRATIVE: CASE EVENT DATE: 20220716
